FAERS Safety Report 16939665 (Version 1)
Quarter: 2019Q4

REPORT INFORMATION
  Report Type: Spontaneous
  Country: US (occurrence: US)
  Receive Date: 20191021
  Receipt Date: 20191021
  Transmission Date: 20200122
  Serious: Yes (Other)
  Sender: FDA-Public Use
  Company Number: US-TEVA-2019-US-1123338

PATIENT
  Age: 81 Year
  Sex: Female

DRUGS (1)
  1. OCTREOTIDE ACETATE. [Suspect]
     Active Substance: OCTREOTIDE ACETATE
     Indication: DIARRHOEA
     Dosage: DOSE STRENGTH:  50 MCG/ML, 1 ML
     Route: 058
     Dates: start: 20191007

REACTIONS (11)
  - Blood glucose increased [Unknown]
  - Nervousness [Not Recovered/Not Resolved]
  - Anxiety [Not Recovered/Not Resolved]
  - Feeling abnormal [Not Recovered/Not Resolved]
  - Blood glucose fluctuation [Not Recovered/Not Resolved]
  - Crying [Not Recovered/Not Resolved]
  - Product use complaint [Unknown]
  - Tremor [Not Recovered/Not Resolved]
  - Lipoma [Unknown]
  - Abdominal pain upper [Not Recovered/Not Resolved]
  - Mental disorder [Not Recovered/Not Resolved]

NARRATIVE: CASE EVENT DATE: 201910
